FAERS Safety Report 8735074 (Version 2)
Quarter: 2013Q4

REPORT INFORMATION
  Report Type: Spontaneous
  Country: US (occurrence: US)
  Receive Date: 20120821
  Receipt Date: 20131031
  Transmission Date: 20140711
  Serious: No
  Sender: FDA-Public Use
  Company Number: US-009507513-2012SP036687

PATIENT
  Sex: Female

DRUGS (1)
  1. AFRIN SEVERE CONGESTION SPRAY [Suspect]
     Indication: PRODUCT USED FOR UNKNOWN INDICATION
     Route: 045

REACTIONS (2)
  - Dependence [Unknown]
  - Accidental exposure to product [Unknown]
